FAERS Safety Report 4760780-2 (Version None)
Quarter: 2005Q3

REPORT INFORMATION
  Report Type: 
  Country: None (occurrence: None)
  Receive Date: 20050902
  Receipt Date: 20050815
  Transmission Date: 20060218
  Serious: Yes (Hospitalization, Other)
  Sender: FDA-Public Use
  Company Number: DE-ABBOTT-05P-062-0308415-00

PATIENT
  Sex: Male

DRUGS (4)
  1. KLARICID FILM-COATED TABLETS [Suspect]
     Indication: DRUG USE FOR UNKNOWN INDICATION
     Route: 048
     Dates: start: 20010123, end: 20050222
  2. AMBROXOL HYDROCHLORIDE [Concomitant]
     Indication: DRUG USE FOR UNKNOWN INDICATION
     Dates: start: 20010119
  3. BETAHISTINE HYDROCHLORIDE [Concomitant]
     Indication: DRUG USE FOR UNKNOWN INDICATION
     Dates: start: 20031101
  4. SIGAMUC [Concomitant]
     Indication: DRUG USE FOR UNKNOWN INDICATION
     Dates: start: 20041009

REACTIONS (5)
  - GYNAECOMASTIA [None]
  - HYPERTROPHY BREAST [None]
  - TENSION [None]
  - TESTICULAR EMBRYONAL CARCINOMA [None]
  - TESTICULAR SEMINOMA (PURE) [None]
